FAERS Safety Report 17453987 (Version 1)
Quarter: 2020Q1

REPORT INFORMATION
  Report Type: Spontaneous
  Country: US (occurrence: US)
  Receive Date: 20200224
  Receipt Date: 20200224
  Transmission Date: 20200409
  Serious: Yes (Other)
  Sender: FDA-Public Use
  Company Number: US-ACELLA PHARMACEUTICALS, LLC-2080853

PATIENT
  Sex: Female

DRUGS (1)
  1. NP THYROID [Suspect]
     Active Substance: LEVOTHYROXINE\LIOTHYRONINE
     Indication: HYPOTHYROIDISM
     Route: 048
     Dates: start: 201906, end: 201911

REACTIONS (13)
  - Feeling abnormal [Recovered/Resolved]
  - Diarrhoea [Recovered/Resolved]
  - Pyrexia [Recovered/Resolved]
  - Insomnia [Recovered/Resolved]
  - Cytomegalovirus test positive [Unknown]
  - Malaise [Recovered/Resolved]
  - Fatigue [Recovered/Resolved]
  - Dehydration [Recovered/Resolved]
  - Infectious mononucleosis [Recovered/Resolved]
  - Epstein-Barr virus test positive [Unknown]
  - Heart rate increased [Recovered/Resolved]
  - Abdominal discomfort [Recovered/Resolved]
  - Oropharyngeal pain [Recovered/Resolved]

NARRATIVE: CASE EVENT DATE: 2019
